FAERS Safety Report 6610678-X (Version None)
Quarter: 2010Q1

REPORT INFORMATION
  Report Type: 
  Country: None (occurrence: None)
  Receive Date: 20100302
  Receipt Date: 20100222
  Transmission Date: 20100710
  Serious: Yes (Hospitalization)
  Sender: FDA-Public Use
  Company Number: A0846763A

PATIENT
  Sex: Female

DRUGS (6)
  1. IMITREX [Suspect]
     Indication: DRUG USE FOR UNKNOWN INDICATION
     Route: 065
  2. LYRICA [Suspect]
     Indication: FIBROMYALGIA
     Dosage: 50MG TWICE PER DAY
     Route: 048
     Dates: start: 20090301
  3. SAVELLA [Suspect]
     Indication: FIBROMYALGIA
     Dosage: 50MG TWICE PER DAY
     Route: 048
     Dates: start: 20090901
  4. ENTOCORT EC [Concomitant]
     Dosage: 3MG TWICE PER DAY
  5. RITALIN [Concomitant]
     Dosage: 20MG TWICE PER DAY
  6. SOMA [Concomitant]

REACTIONS (17)
  - AGITATION [None]
  - ARTHRALGIA [None]
  - CONFUSIONAL STATE [None]
  - DIARRHOEA [None]
  - ERYTHEMA [None]
  - FEELING ABNORMAL [None]
  - HYPERACUSIS [None]
  - JOINT SWELLING [None]
  - MIGRAINE [None]
  - NAUSEA [None]
  - OEDEMA PERIPHERAL [None]
  - OROPHARYNGEAL PAIN [None]
  - PAIN [None]
  - PAIN IN EXTREMITY [None]
  - PHOTOSENSITIVITY REACTION [None]
  - SKIN CHAPPED [None]
  - VOMITING [None]
